FAERS Safety Report 21424625 (Version 2)
Quarter: 2023Q1

REPORT INFORMATION
  Report Type: Spontaneous
  Country: US (occurrence: US)
  Receive Date: 20221007
  Receipt Date: 20230106
  Transmission Date: 20230418
  Serious: No
  Sender: FDA-Public Use
  Company Number: US-BRISTOL-MYERS SQUIBB COMPANY-2022-117038

PATIENT
  Age: 93 Year
  Sex: Female
  Weight: 63.05 kg

DRUGS (1)
  1. REVLIMID [Suspect]
     Active Substance: LENALIDOMIDE
     Indication: Myelodysplastic syndrome
     Dosage: DAILY FOR 14DAYS
     Route: 048
     Dates: start: 20220910

REACTIONS (4)
  - Diarrhoea [Unknown]
  - Intentional product use issue [Unknown]
  - Nausea [Unknown]
  - Vomiting [Unknown]
